FAERS Safety Report 23153865 (Version 1)
Quarter: 2023Q4

REPORT INFORMATION
  Report Type: Spontaneous
  Country: US (occurrence: None)
  Receive Date: 20231103
  Receipt Date: 20231103
  Transmission Date: 20240109
  Serious: Yes (Hospitalization)
  Sender: FDA-Public Use
  Company Number: None

PATIENT
  Age: 61 Year
  Sex: Female

DRUGS (6)
  1. SILDENAFIL CITRATE [Suspect]
     Active Substance: SILDENAFIL CITRATE
     Indication: Pulmonary arterial hypertension
     Dosage: FREQUENCY : 3 TIMES A DAY;?
     Route: 048
     Dates: start: 202304
  2. IV LINE [Concomitant]
  3. FLOLAN STERILE DILUENT [Concomitant]
  4. DEVICE [Concomitant]
     Active Substance: DEVICE
  5. TREPROSTINIL [Concomitant]
     Active Substance: TREPROSTINIL
  6. OPSUMIT [Concomitant]
     Active Substance: MACITENTAN

REACTIONS (2)
  - Catheter site discharge [None]
  - Vessel puncture site pain [None]

NARRATIVE: CASE EVENT DATE: 20231102
